FAERS Safety Report 4814554-4 (Version None)
Quarter: 2005Q4

REPORT INFORMATION
  Report Type: 
  Country: None (occurrence: None)
  Receive Date: 20051028
  Receipt Date: 20040415
  Transmission Date: 20060501
  Serious: Yes (Hospitalization)
  Sender: FDA-Public Use
  Company Number: IE-SOLVAY-00205003459

PATIENT
  Age: 30474 Day
  Sex: Female
  Weight: 66 kg

DRUGS (2)
  1. PERINDOPRIL [Suspect]
     Indication: CARDIAC FAILURE CONGESTIVE
     Dosage: DAILY DOSE: 4 MILLIGRAM(S)
     Route: 048
     Dates: start: 20011206, end: 20020221
  2. PERINDOPRIL [Suspect]
     Dosage: DAILY DOSE: 4 MILLIGRAM(S)
     Route: 048
     Dates: start: 20020228, end: 20020320

REACTIONS (4)
  - BILE DUCT STONE [None]
  - COUGH [None]
  - EPIGASTRIC DISCOMFORT [None]
  - JAUNDICE [None]
